FAERS Safety Report 5083045-0 (Version None)
Quarter: 2006Q3

REPORT INFORMATION
  Report Type: 
  Country: None (occurrence: None)
  Receive Date: 20060814
  Receipt Date: 20060801
  Transmission Date: 20061208
  Serious: Yes (Hospitalization)
  Sender: FDA-Public Use
  Company Number: 2006095352

PATIENT
  Age: 60 Year
  Sex: Female

DRUGS (9)
  1. FELDENE [Suspect]
     Indication: DRUG USE FOR UNKNOWN INDICATION
     Dosage: 20 MG (20 MG, 1 IN 1 D), ORAL
     Route: 048
     Dates: start: 20041115, end: 20060319
  2. VERAPAMIL HYDROCHLORIDE [Suspect]
     Indication: ESSENTIAL HYPERTENSION
     Dosage: 240 MG (240 MG, 1 IN 1 D), ORAL
     Route: 048
  3. PRAVASTATIN [Suspect]
     Indication: HYPERCHOLESTEROLAEMIA
     Dosage: ONE DOSE FORM (1 IN 1 D), ORAL
     Route: 048
  4. FORMOTEROL W/BUDESONIDE (BUDESONIDE, FORMOTEROL) [Suspect]
     Indication: BRONCHITIS CHRONIC
     Dosage: 2 DOSE FORMS (2 IN 1 D), ORAL
     Route: 048
  5. PROGESTERONE [Suspect]
     Indication: MENOPAUSAL DISORDER
     Dosage: ONE DOSE FORM (1 IN 1 D), ORAL
     Route: 048
  6. ESTRADIOL [Suspect]
     Indication: MENOPAUSAL DISORDER
     Dosage: ORAL
     Route: 048
  7. ESOMEPRAZOLE MAGNESIUM [Concomitant]
  8. LACTULOSE [Concomitant]
  9. FLUOXETINE [Concomitant]

REACTIONS (4)
  - COLITIS [None]
  - FOOD POISONING [None]
  - LEUKOCYTOSIS [None]
  - MUCOUS MEMBRANE DISORDER [None]
